FAERS Safety Report 23578562 (Version 1)
Quarter: 2024Q1

REPORT INFORMATION
  Report Type: Spontaneous
  Country: US (occurrence: None)
  Receive Date: 20240229
  Receipt Date: 20240229
  Transmission Date: 20240410
  Serious: No
  Sender: FDA-Public Use
  Company Number: 2024A049243

PATIENT
  Sex: Female

DRUGS (1)
  1. BUDESONIDE [Suspect]
     Active Substance: BUDESONIDE
     Indication: Allergy to animal
     Dosage: 90 MCG X 2 X BID DAILY DOSE: 360 MICROGRAM
     Route: 055

REACTIONS (1)
  - Device malfunction [Unknown]
